FAERS Safety Report 25485354 (Version 2)
Quarter: 2025Q3

REPORT INFORMATION
  Report Type: Spontaneous
  Country: CA (occurrence: CA)
  Receive Date: 20250626
  Receipt Date: 20250818
  Transmission Date: 20251021
  Serious: Yes (Congenital Anomaly)
  Sender: SANOFI AVENTIS
  Company Number: CA-SA-2025SA176559

PATIENT

DRUGS (101)
  1. METFORMIN HYDROCHLORIDE [Suspect]
     Active Substance: METFORMIN HYDROCHLORIDE
     Indication: Foetal exposure during pregnancy
     Route: 064
  2. METFORMIN HYDROCHLORIDE [Suspect]
     Active Substance: METFORMIN HYDROCHLORIDE
  3. PREDNISONE [Suspect]
     Active Substance: PREDNISONE
     Indication: Foetal exposure during pregnancy
     Route: 064
  4. RAMIPRIL [Suspect]
     Active Substance: RAMIPRIL
     Indication: Foetal exposure during pregnancy
     Route: 064
  5. ARAVA [Suspect]
     Active Substance: LEFLUNOMIDE
     Indication: Foetal exposure during pregnancy
     Route: 064
  6. ARAVA [Suspect]
     Active Substance: LEFLUNOMIDE
  7. HYDROXYCHLOROQUINE SULFATE [Suspect]
     Active Substance: HYDROXYCHLOROQUINE SULFATE
     Indication: Foetal exposure during pregnancy
     Route: 064
  8. ATOMOXETINE HYDROCHLORIDE [Suspect]
     Active Substance: ATOMOXETINE HYDROCHLORIDE
     Indication: Foetal exposure during pregnancy
     Route: 064
  9. ATOMOXETINE HYDROCHLORIDE [Suspect]
     Active Substance: ATOMOXETINE HYDROCHLORIDE
  10. LAMOTRIGINE [Suspect]
     Active Substance: LAMOTRIGINE
     Indication: Foetal exposure during pregnancy
     Route: 064
  11. DESOXIMETASONE [Suspect]
     Active Substance: DESOXIMETASONE
     Indication: Foetal exposure during pregnancy
     Route: 064
  12. DICLOFENAC SODIUM [Suspect]
     Active Substance: DICLOFENAC SODIUM
     Indication: Foetal exposure during pregnancy
     Route: 064
  13. ACETAMINOPHEN [Suspect]
     Active Substance: ACETAMINOPHEN
     Indication: Foetal exposure during pregnancy
     Route: 064
  14. ACETAMINOPHEN [Suspect]
     Active Substance: ACETAMINOPHEN
  15. ALENDRONATE SODIUM [Suspect]
     Active Substance: ALENDRONATE SODIUM
     Indication: Foetal exposure during pregnancy
     Route: 064
  16. ALENDRONATE SODIUM [Suspect]
     Active Substance: ALENDRONATE SODIUM
  17. CELECOXIB [Suspect]
     Active Substance: CELECOXIB
     Indication: Foetal exposure during pregnancy
     Route: 064
  18. CORTISONE ACETATE [Suspect]
     Active Substance: CORTISONE ACETATE
     Indication: Foetal exposure during pregnancy
     Route: 064
  19. CORTISONE ACETATE [Suspect]
     Active Substance: CORTISONE ACETATE
     Route: 065
  20. CANDESARTAN [Suspect]
     Active Substance: CANDESARTAN
     Indication: Foetal exposure during pregnancy
     Route: 064
  21. CANDESARTAN [Suspect]
     Active Substance: CANDESARTAN
  22. DOMPERIDONE MALEATE [Suspect]
     Active Substance: DOMPERIDONE MALEATE
     Indication: Foetal exposure during pregnancy
     Route: 064
  23. DOMPERIDONE MALEATE [Suspect]
     Active Substance: DOMPERIDONE MALEATE
  24. METHOTREXATE [Suspect]
     Active Substance: METHOTREXATE
     Indication: Foetal exposure during pregnancy
     Route: 064
  25. MINOCYCLINE HYDROCHLORIDE [Suspect]
     Active Substance: MINOCYCLINE HYDROCHLORIDE
     Indication: Foetal exposure during pregnancy
     Route: 064
  26. MYOCHRYSINE [Suspect]
     Active Substance: GOLD SODIUM THIOMALATE
     Indication: Foetal exposure during pregnancy
     Route: 030
  27. NAPROXEN SODIUM [Suspect]
     Active Substance: NAPROXEN SODIUM
     Indication: Foetal exposure during pregnancy
     Route: 064
  28. NAPROXEN SODIUM [Suspect]
     Active Substance: NAPROXEN SODIUM
  29. OXYCODONE [Suspect]
     Active Substance: OXYCODONE
     Indication: Foetal exposure during pregnancy
     Route: 064
  30. OXYCODONE [Suspect]
     Active Substance: OXYCODONE
  31. GOLD SODIUM THIOMALATE [Suspect]
     Active Substance: GOLD SODIUM THIOMALATE
     Indication: Foetal exposure during pregnancy
     Route: 064
  32. SULFASALAZINE [Suspect]
     Active Substance: SULFASALAZINE
     Indication: Foetal exposure during pregnancy
     Route: 064
  33. ZINC [Suspect]
     Active Substance: ZINC
     Indication: Foetal exposure during pregnancy
     Route: 064
  34. ACETAMINOPHEN AND CODEINE [Suspect]
     Active Substance: ACETAMINOPHEN\CODEINE PHOSPHATE
     Indication: Foetal exposure during pregnancy
     Route: 064
  35. ACETAMINOPHEN AND CODEINE [Suspect]
     Active Substance: ACETAMINOPHEN\CODEINE PHOSPHATE
     Route: 065
  36. ACTEMRA [Suspect]
     Active Substance: TOCILIZUMAB
     Indication: Foetal exposure during pregnancy
     Route: 064
  37. ACTEMRA [Suspect]
     Active Substance: TOCILIZUMAB
  38. AZATHIOPRINE [Suspect]
     Active Substance: AZATHIOPRINE
     Indication: Foetal exposure during pregnancy
     Route: 064
  39. AZATHIOPRINE [Suspect]
     Active Substance: AZATHIOPRINE
  40. BERINERT [Suspect]
     Active Substance: HUMAN C1-ESTERASE INHIBITOR
     Indication: Foetal exposure during pregnancy
     Route: 064
  41. BOTULINUM TOXIN TYPE A [Suspect]
     Active Substance: BOTULINUM TOXIN TYPE A
     Indication: Foetal exposure during pregnancy
     Route: 064
  42. BOTULINUM TOXIN TYPE A [Suspect]
     Active Substance: BOTULINUM TOXIN TYPE A
  43. BUTRANS [Suspect]
     Active Substance: BUPRENORPHINE
     Indication: Foetal exposure during pregnancy
     Route: 064
  44. BUTRANS [Suspect]
     Active Substance: BUPRENORPHINE
  45. CALCIUM ASCORBATE [Suspect]
     Active Substance: CALCIUM ASCORBATE
     Indication: Foetal exposure during pregnancy
     Route: 064
  46. CALCIUM ASCORBATE [Suspect]
     Active Substance: CALCIUM ASCORBATE
  47. CALCIUM CITRATE [Suspect]
     Active Substance: CALCIUM CITRATE
     Indication: Foetal exposure during pregnancy
     Route: 064
  48. CALCIUM CITRATE [Suspect]
     Active Substance: CALCIUM CITRATE
  49. CALCIUM GLUBIONATE [Suspect]
     Active Substance: CALCIUM GLUBIONATE
     Indication: Foetal exposure during pregnancy
     Route: 064
  50. CALCIUM GLUBIONATE [Suspect]
     Active Substance: CALCIUM GLUBIONATE
  51. CETIRIZINE [Suspect]
     Active Substance: CETIRIZINE HYDROCHLORIDE
     Indication: Foetal exposure during pregnancy
     Route: 064
  52. CETIRIZINE [Suspect]
     Active Substance: CETIRIZINE HYDROCHLORIDE
  53. CHLORHEXIDINE GLUCONATE [Suspect]
     Active Substance: CHLORHEXIDINE GLUCONATE
     Indication: Foetal exposure during pregnancy
     Route: 064
  54. CHLORHEXIDINE GLUCONATE [Suspect]
     Active Substance: CHLORHEXIDINE GLUCONATE
  55. CHOLECALCIFEROL [Suspect]
     Active Substance: CHOLECALCIFEROL
     Indication: Foetal exposure during pregnancy
     Route: 064
  56. CHOLECALCIFEROL [Suspect]
     Active Substance: CHOLECALCIFEROL
  57. CIMZIA [Suspect]
     Active Substance: CERTOLIZUMAB PEGOL
     Indication: Foetal exposure during pregnancy
     Route: 064
  58. COSENTYX [Suspect]
     Active Substance: SECUKINUMAB
     Indication: Foetal exposure during pregnancy
  59. ENBREL [Suspect]
     Active Substance: ETANERCEPT
     Indication: Foetal exposure during pregnancy
  60. ERGOCALCIFEROL [Suspect]
     Active Substance: ERGOCALCIFEROL
     Indication: Foetal exposure during pregnancy
  61. FLUMETHASONE [Suspect]
     Active Substance: FLUMETHASONE
     Indication: Foetal exposure during pregnancy
     Route: 064
  62. FLUMETHASONE PIVALATE [Suspect]
     Active Substance: FLUMETHASONE PIVALATE
     Indication: Foetal exposure during pregnancy
     Route: 064
  63. FOLIC ACID [Suspect]
     Active Substance: FOLIC ACID
     Indication: Foetal exposure during pregnancy
     Route: 064
  64. FOSAMAX [Suspect]
     Active Substance: ALENDRONATE SODIUM
     Indication: Foetal exposure during pregnancy
     Route: 064
  65. HAIR KERATIN AMINO ACIDS GOLD COMPLEX [Suspect]
     Active Substance: HAIR KERATIN AMINO ACIDS GOLD COMPLEX
     Indication: Foetal exposure during pregnancy
     Route: 064
  66. GOLD SODIUM THIOMALATE [Suspect]
     Active Substance: GOLD SODIUM THIOMALATE
     Indication: Foetal exposure during pregnancy
     Route: 064
  67. HUMIRA [Suspect]
     Active Substance: ADALIMUMAB
     Indication: Foetal exposure during pregnancy
     Route: 064
  68. HYDROCORTISONE PROBUTATE [Suspect]
     Active Substance: HYDROCORTISONE PROBUTATE
     Indication: Foetal exposure during pregnancy
     Route: 064
  69. HYDROCORTISONE PROBUTATE [Suspect]
     Active Substance: HYDROCORTISONE PROBUTATE
  70. HYRIMOZ [Suspect]
     Active Substance: ADALIMUMAB-ADAZ
     Indication: Foetal exposure during pregnancy
     Route: 058
  71. HYRIMOZ [Suspect]
     Active Substance: ADALIMUMAB-ADAZ
     Route: 064
  72. INFLIXIMAB [Suspect]
     Active Substance: INFLIXIMAB
     Indication: Foetal exposure during pregnancy
     Route: 064
  73. ISOPROPYL ALCOHOL [Suspect]
     Active Substance: ISOPROPYL ALCOHOL
     Indication: Foetal exposure during pregnancy
     Route: 061
  74. MAGNESIUM CITRATE [Suspect]
     Active Substance: MAGNESIUM CITRATE
     Indication: Foetal exposure during pregnancy
     Route: 064
  75. METHYLPREDNISOLONE [Suspect]
     Active Substance: METHYLPREDNISOLONE
     Indication: Foetal exposure during pregnancy
     Route: 064
  76. METHYLPREDNISOLONE SODIUM SUCCINATE [Suspect]
     Active Substance: METHYLPREDNISOLONE SODIUM SUCCINATE
     Indication: Foetal exposure during pregnancy
     Route: 064
  77. MINOCYCLINE [Suspect]
     Active Substance: MINOCYCLINE HYDROCHLORIDE
     Indication: Foetal exposure during pregnancy
     Route: 064
  78. MYRBETRIQ [Suspect]
     Active Substance: MIRABEGRON
     Indication: Foetal exposure during pregnancy
     Route: 064
  79. NAPROXEN [Suspect]
     Active Substance: NAPROXEN
     Indication: Foetal exposure during pregnancy
     Route: 064
  80. NICOTINAMIDE [Suspect]
     Active Substance: NIACINAMIDE
     Indication: Foetal exposure during pregnancy
     Route: 064
  81. NICOTINAMIDE [Suspect]
     Active Substance: NIACINAMIDE
  82. NUCALA [Suspect]
     Active Substance: MEPOLIZUMAB
     Indication: Foetal exposure during pregnancy
     Route: 064
  83. ORENCIA [Suspect]
     Active Substance: ABATACEPT
     Indication: Foetal exposure during pregnancy
     Route: 064
  84. OXYCODONE TEREPHTHALATE [Suspect]
     Active Substance: OXYCODONE TEREPHTHALATE
     Indication: Foetal exposure during pregnancy
     Route: 064
  85. PERIOGARD [Suspect]
     Active Substance: CHLORHEXIDINE GLUCONATE
     Indication: Foetal exposure during pregnancy
     Route: 064
  86. PHENYLEPHRINE HYDROCHLORIDE [Suspect]
     Active Substance: PHENYLEPHRINE HYDROCHLORIDE
     Indication: Foetal exposure during pregnancy
     Route: 064
  87. PHENYLEPHRINE HYDROCHLORIDE [Suspect]
     Active Substance: PHENYLEPHRINE HYDROCHLORIDE
  88. PHTHALYLSULFATHIAZOLE [Suspect]
     Active Substance: PHTHALYLSULFATHIAZOLE
     Indication: Product used for unknown indication
     Route: 064
  89. PSEUDOEPHEDRINE [Suspect]
     Active Substance: PSEUDOEPHEDRINE
     Indication: Foetal exposure during pregnancy
     Route: 064
  90. CETIRIZINE HYDROCHLORIDE\PSEUDOEPHEDRINE HYDROCHLORIDE [Suspect]
     Active Substance: CETIRIZINE HYDROCHLORIDE\PSEUDOEPHEDRINE HYDROCHLORIDE
     Indication: Foetal exposure during pregnancy
     Route: 064
  91. RITUXIMAB [Suspect]
     Active Substance: RITUXIMAB
     Indication: Foetal exposure during pregnancy
     Dosage: 2000 MG, QD
  92. RITUXIMAB [Suspect]
     Active Substance: RITUXIMAB
  93. RITUXIMAB [Suspect]
     Active Substance: RITUXIMAB
  94. HYDROCORTISONE [Suspect]
     Active Substance: HYDROCORTISONE
     Indication: Foetal exposure during pregnancy
     Route: 064
  95. HYDROCORTISONE [Suspect]
     Active Substance: HYDROCORTISONE
  96. SIMPONI [Suspect]
     Active Substance: GOLIMUMAB
     Indication: Foetal exposure during pregnancy
     Route: 064
  97. STELARA [Suspect]
     Active Substance: USTEKINUMAB
     Indication: Foetal exposure during pregnancy
     Route: 064
  98. VITAMIN C [Suspect]
     Active Substance: ASCORBIC ACID
     Indication: Foetal exposure during pregnancy
     Route: 064
  99. VITAMIN C [Suspect]
     Active Substance: ASCORBIC ACID
  100. XELJANZ [Suspect]
     Active Substance: TOFACITINIB CITRATE
     Indication: Foetal exposure during pregnancy
     Route: 064
  101. TOPIRAMATE [Suspect]
     Active Substance: TOPIRAMATE
     Indication: Foetal exposure during pregnancy
     Route: 064

REACTIONS (3)
  - Congenital anomaly [Unknown]
  - Foetal exposure during pregnancy [Unknown]
  - Maternal exposure during pregnancy [Unknown]
